FAERS Safety Report 11553281 (Version 1)
Quarter: 2015Q3

REPORT INFORMATION
  Report Type: Spontaneous
  Country: NL (occurrence: NL)
  Receive Date: 20150925
  Receipt Date: 20150925
  Transmission Date: 20151125
  Serious: Yes (Death, Other)
  Sender: FDA-Public Use
  Company Number: NL-SHENZHEN TECHDOW PHARMACEUTICAL CO. LTD-NL-2015TEC0000030

PATIENT

DRUGS (2)
  1. HEPARIN SODIUM INJECTION USP, PRESERVATIVE FREE (HEPARIN SODIUM) INJECTION [Suspect]
     Active Substance: HEPARIN SODIUM
     Indication: ANTICOAGULANT THERAPY
     Dosage: UNK
     Route: 058
  2. WARFARIN [Concomitant]
     Active Substance: WARFARIN
     Indication: ANTICOAGULANT THERAPY
     Dosage: 3 MG, UNK

REACTIONS (6)
  - Exposure during pregnancy [Unknown]
  - Premature baby [Recovered/Resolved]
  - Cardiac valve replacement complication [Fatal]
  - Transient ischaemic attack [Unknown]
  - Caesarean section [Unknown]
  - Cerebrovascular accident [Unknown]
